FAERS Safety Report 4737741-2 (Version None)
Quarter: 2005Q3

REPORT INFORMATION
  Report Type: 
  Country: None (occurrence: None)
  Receive Date: 20050805
  Receipt Date: 20050728
  Transmission Date: 20060218
  Serious: Yes (Hospitalization, Other)
  Sender: FDA-Public Use
  Company Number: 2005106526

PATIENT
  Sex: Female
  Weight: 49.8957 kg

DRUGS (8)
  1. PROCARDIA [Suspect]
     Indication: HYPERTENSION
     Dosage: (10 MG, PRN)
  2. MINOPRESS (PRAZOSIN) [Suspect]
     Indication: HYPERTENSION
     Dates: start: 20050721
  3. ALEVE [Suspect]
     Indication: COMPRESSION FRACTURE
     Dates: start: 20050101, end: 20050101
  4. ZESTRIL [Suspect]
     Indication: HYPERTENSION
     Dosage: (20 MG)
     Dates: end: 20050101
  5. TIAZAC [Concomitant]
  6. NORVASC [Concomitant]
  7. DEMADEX [Concomitant]
  8. CARDURA [Concomitant]

REACTIONS (13)
  - BLEEDING VARICOSE VEIN [None]
  - BLOOD CREATININE INCREASED [None]
  - BLOOD UREA INCREASED [None]
  - COMPRESSION FRACTURE [None]
  - CONDITION AGGRAVATED [None]
  - DRUG INEFFECTIVE [None]
  - FEMORAL ARTERY OCCLUSION [None]
  - GASTROINTESTINAL ULCER HAEMORRHAGE [None]
  - HAEMOGLOBIN DECREASED [None]
  - HYPERTENSION [None]
  - RENAL ARTERY OCCLUSION [None]
  - RENAL ARTERY STENOSIS [None]
  - RENAL DISORDER [None]
